FAERS Safety Report 23130334 (Version 3)
Quarter: 2024Q1

REPORT INFORMATION
  Report Type: Report from Study
  Country: US (occurrence: US)
  Receive Date: 20231031
  Receipt Date: 20240305
  Transmission Date: 20240410
  Serious: Yes (Hospitalization)
  Sender: FDA-Public Use
  Company Number: US-ACADIA PHARMACEUTICALS INC.-ACA-2023-PIM-004542

PATIENT
  Sex: Male

DRUGS (10)
  1. NUPLAZID [Suspect]
     Active Substance: PIMAVANSERIN TARTRATE
     Indication: Parkinson^s disease psychosis
     Dosage: 34 MILLIGRAM, QD
     Route: 048
     Dates: start: 20230907
  2. NUPLAZID [Suspect]
     Active Substance: PIMAVANSERIN TARTRATE
     Dosage: 34 MILLIGRAM, QD
     Route: 048
     Dates: start: 20231012
  3. CARBIDOPA\LEVODOPA [Concomitant]
     Active Substance: CARBIDOPA\LEVODOPA
     Dosage: 25-100 MG, 1 TABLET 4 TIMES A DAY
  4. RASAGILINE [Concomitant]
     Active Substance: RASAGILINE\RASAGILINE MESYLATE
     Dosage: 1 MG, 1 TABLET DAILY
  5. BACLOFEN [Concomitant]
     Active Substance: BACLOFEN
     Dosage: 1 TABLET, 3 TIMES A DAY
  6. VITAMIN D NOS [Concomitant]
     Active Substance: VITAMIN D NOS
  7. ACETAMINOPHEN\HYDROCODONE [Concomitant]
     Active Substance: ACETAMINOPHEN\HYDROCODONE
     Dosage: 5/325 PRN
  8. L CARNITINE [LEVOCARNITINE FUMARATE] [Concomitant]
  9. LACTULOSE [Concomitant]
     Active Substance: LACTULOSE
     Dosage: 10G/15 ML, 15 ML DAILY
  10. AZELASTINE [Concomitant]
     Active Substance: AZELASTINE\AZELASTINE HYDROCHLORIDE
     Dosage: PRN

REACTIONS (10)
  - Bladder spasm [Unknown]
  - Pollakiuria [Unknown]
  - Hallucination [Unknown]
  - Dyspnoea [Unknown]
  - Insomnia [Not Recovered/Not Resolved]
  - Ammonia increased [Unknown]
  - Therapeutic response unexpected [Unknown]
  - Product dose omission issue [Not Recovered/Not Resolved]
  - Confusional state [Not Recovered/Not Resolved]
  - Somnolence [Not Recovered/Not Resolved]
